FAERS Safety Report 5564373-9 (Version None)
Quarter: 2007Q4

REPORT INFORMATION
  Report Type: 
  Country: None (occurrence: None)
  Receive Date: 20071218
  Receipt Date: 20071213
  Transmission Date: 20080405
  Serious: Yes (Hospitalization, Disabling, Other)
  Sender: FDA-Public Use
  Company Number: JP-BRISTOL-MYERS SQUIBB COMPANY-13939608

PATIENT
  Age: 37 Year
  Sex: Female

DRUGS (8)
  1. TAXOL [Suspect]
     Indication: OVARIAN CANCER
     Route: 041
     Dates: start: 20070419, end: 20070712
  2. PARAPLATIN [Suspect]
     Indication: OVARIAN CANCER
     Route: 041
     Dates: start: 20070419, end: 20070712
  3. ESTRADERM [Suspect]
     Indication: OVARIAN FAILURE
     Route: 061
     Dates: start: 20050607, end: 20071001
  4. ALOSENN [Concomitant]
     Route: 048
     Dates: start: 20070519
  5. NASEA [Concomitant]
     Route: 041
     Dates: start: 20070420
  6. BUP-4 [Concomitant]
     Route: 048
     Dates: start: 20070305
  7. MAGNESIUM OXIDE [Concomitant]
     Route: 048
     Dates: start: 20050519
  8. GOSHAJINKIGAN [Concomitant]
     Route: 048
     Dates: start: 20070907

REACTIONS (1)
  - CEREBRAL INFARCTION [None]
